FAERS Safety Report 4787922-7 (Version None)
Quarter: 2005Q4

REPORT INFORMATION
  Report Type: 
  Country: None (occurrence: None)
  Receive Date: 20051004
  Receipt Date: 20050927
  Transmission Date: 20060501
  Serious: Yes (Hospitalization, Disabling)
  Sender: FDA-Public Use
  Company Number: US-MERCK-0509USA04710

PATIENT
  Age: 68 Year
  Sex: Male
  Weight: 82 kg

DRUGS (5)
  1. VIOXX [Suspect]
     Indication: PAIN
     Route: 048
     Dates: start: 20020517, end: 20031230
  2. GLUCOVANCE [Concomitant]
     Route: 065
  3. PAXIL [Concomitant]
     Route: 065
  4. ZYRTEC [Concomitant]
     Route: 065
  5. TOPROL-XL [Concomitant]
     Route: 065

REACTIONS (3)
  - CEREBROVASCULAR ACCIDENT [None]
  - HAEMORRHAGE [None]
  - ULCER [None]
